FAERS Safety Report 6867285-3 (Version None)
Quarter: 2010Q2

REPORT INFORMATION
  Report Type: 
  Country: None (occurrence: None)
  Receive Date: 20100528
  Receipt Date: 20100409
  Transmission Date: 20101027
  Serious: No
  Sender: FDA-Public Use
  Company Number: 2010032497

PATIENT
  Age: 57 Year
  Sex: Female
  Weight: 54.4 kg

DRUGS (4)
  1. TOVIAZ [Suspect]
     Indication: HYPERTONIC BLADDER
     Dosage: 4 MG, 1X/DAY, ORAL
     Route: 048
     Dates: start: 20100301
  2. CELEBREX [Suspect]
     Indication: ARTHROPATHY
  3. OXYBUTYNIN CHLORIDE [Suspect]
     Indication: HYPERTONIC BLADDER
  4. VESICARE [Suspect]
     Indication: HYPERTONIC BLADDER
     Dates: end: 20100101

REACTIONS (4)
  - MUSCLE SPASMS [None]
  - MYALGIA [None]
  - POOR QUALITY SLEEP [None]
  - UNEVALUABLE EVENT [None]
